FAERS Safety Report 6555121-4 (Version None)
Quarter: 2010Q1

REPORT INFORMATION
  Report Type: 
  Country: None (occurrence: None)
  Receive Date: 20100126
  Receipt Date: 20100126
  Transmission Date: 20100710
  Serious: Yes (Other)
  Sender: FDA-Public Use
  Company Number: None

PATIENT
  Age: 72 Year
  Sex: Female
  Weight: 63.9572 kg

DRUGS (2)
  1. MINOXIDIL [Suspect]
     Indication: BLOOD PRESSURE
     Dosage: 2.5 MG 2 A DAY
     Dates: start: 20090628, end: 20091220
  2. MINOXIDIL [Suspect]
     Dosage: 2.5 MG 2 A DAY

REACTIONS (3)
  - BLISTER [None]
  - BLOOD PRESSURE INCREASED [None]
  - PRODUCT SUBSTITUTION ISSUE [None]
